FAERS Safety Report 7269350-8 (Version None)
Quarter: 2011Q1

REPORT INFORMATION
  Report Type: 
  Country: None (occurrence: None)
  Receive Date: 20110119
  Receipt Date: 20110112
  Transmission Date: 20110831
  Serious: Yes (Other)
  Sender: FDA-Public Use
  Company Number: 2010026213

PATIENT
  Sex: Female

DRUGS (1)
  1. VIVAGLOBIN [Suspect]
     Dosage: 53 ML WEEKLY DIVIDED INTO 3 TIMES WEEKLY. INFUSES 20 ML ON FIRST 2 INFUSIONS AND 13 ML ON THE THIRD
     Route: 058
     Dates: start: 20091101

REACTIONS (6)
  - CYTOKINE STORM [None]
  - TREMOR [None]
  - PALLOR [None]
  - COGNITIVE DISORDER [None]
  - HEAD TITUBATION [None]
  - MUSCLE FATIGUE [None]
